FAERS Safety Report 16462295 (Version 1)
Quarter: 2019Q2

REPORT INFORMATION
  Report Type: Spontaneous
  Country: EG (occurrence: EG)
  Receive Date: 20190621
  Receipt Date: 20190621
  Transmission Date: 20190711
  Serious: Yes (Hospitalization, Other)
  Sender: FDA-Public Use
  Company Number: EG-HIKMA PHARMACEUTICALS USA INC.-EG-H14001-19-03967

PATIENT
  Sex: Male

DRUGS (5)
  1. RIBOEPI [Suspect]
     Active Substance: EPIRUBICIN
     Indication: GASTRIC CANCER
     Route: 042
     Dates: start: 20180412
  2. UTORAL [Suspect]
     Active Substance: FLUOROURACIL
     Route: 042
     Dates: start: 20180521
  3. CYTOPLATIN [Suspect]
     Active Substance: CISPLATIN
     Indication: GASTRIC CANCER
     Route: 042
     Dates: start: 20180212
  4. RIBOEPI [Suspect]
     Active Substance: EPIRUBICIN
     Route: 042
     Dates: start: 20180521
  5. UTORAL [Suspect]
     Active Substance: FLUOROURACIL
     Indication: GASTRIC CANCER
     Route: 042
     Dates: start: 20180412

REACTIONS (4)
  - Off label use [Not Recovered/Not Resolved]
  - Nephropathy toxic [Unknown]
  - Ascites [Unknown]
  - Pleural effusion [Unknown]

NARRATIVE: CASE EVENT DATE: 201804
